FAERS Safety Report 9127802 (Version 1)
Quarter: 2013Q1

REPORT INFORMATION
  Report Type: Spontaneous
  Country: US (occurrence: US)
  Receive Date: 20130228
  Receipt Date: 20130228
  Transmission Date: 20140127
  Serious: No
  Sender: FDA-Public Use
  Company Number: US-PFIZER INC-2013068710

PATIENT
  Age: 69 Year
  Sex: Female

DRUGS (5)
  1. AZULFIDINE [Suspect]
     Dosage: UNK
  2. METHOTREXATE SODIUM [Suspect]
     Dosage: UNK
  3. DAYPRO [Suspect]
     Dosage: UNK
  4. PLAQUENIL [Suspect]
  5. ARAVA [Suspect]

REACTIONS (1)
  - Drug hypersensitivity [Unknown]
